FAERS Safety Report 13823832 (Version 1)
Quarter: 2017Q3

REPORT INFORMATION
  Report Type: Spontaneous
  Country: US (occurrence: US)
  Receive Date: 20170802
  Receipt Date: 20170802
  Transmission Date: 20171127
  Serious: No
  Sender: FDA-Public Use
  Company Number: US-PFIZER INC-2017332901

PATIENT
  Age: 60 Year
  Sex: Female

DRUGS (2)
  1. HYDROCODONE [Suspect]
     Active Substance: HYDROCODONE
  2. GABAPENTIN. [Suspect]
     Active Substance: GABAPENTIN
     Dosage: 300 MG, 3X/DAY
     Route: 048

REACTIONS (1)
  - Drug ineffective [Unknown]
